FAERS Safety Report 9192526 (Version 7)
Quarter: 2016Q3

REPORT INFORMATION
  Report Type: Spontaneous
  Country: US (occurrence: US)
  Receive Date: 20130327
  Receipt Date: 20160808
  Transmission Date: 20161109
  Serious: No
  Sender: FDA-Public Use
  Company Number: US-PFIZER INC-2013095889

PATIENT
  Age: 41 Year
  Sex: Female

DRUGS (1)
  1. RELPAX [Suspect]
     Active Substance: ELETRIPTAN HYDROBROMIDE
     Indication: MIGRAINE
     Dosage: 40 MG, 1 TABLET AT ONSET OF HEADACHE, MAY REPEAT X 1 IN 24 HOURS

REACTIONS (1)
  - Drug dispensing error [Unknown]
